FAERS Safety Report 9106229 (Version 2)
Quarter: 2013Q1

REPORT INFORMATION
  Report Type: Spontaneous
  Country: PL (occurrence: PL)
  Receive Date: 20130221
  Receipt Date: 20130326
  Transmission Date: 20140127
  Serious: No
  Sender: FDA-Public Use
  Company Number: PHHY2013PL016823

PATIENT
  Sex: Male

DRUGS (6)
  1. ZOMETA [Suspect]
     Dosage: UNK UKN, UNK
     Dates: start: 20121210
  2. CHEMOTHERAPEUTICS NOS [Concomitant]
     Dosage: UNK
     Dates: start: 20121114
  3. ELUGEL [Concomitant]
     Dosage: UNK UKN, UNK
  4. CHAMOMILE [Concomitant]
     Dosage: UNK UKN, UNK
  5. DOXYCYCLINE [Concomitant]
     Dosage: UNK UKN, UNK
  6. HYDROGEN PEROXIDE [Concomitant]
     Dosage: UNK UKN, UNK

REACTIONS (2)
  - Alveolar osteitis [Unknown]
  - Impaired healing [Not Recovered/Not Resolved]
